FAERS Safety Report 4406300-3 (Version None)
Quarter: 2004Q3

REPORT INFORMATION
  Report Type: 
  Country: None (occurrence: None)
  Receive Date: 20040723
  Receipt Date: 20030611
  Transmission Date: 20050211
  Serious: No
  Sender: FDA-Public Use
  Company Number: 12286316

PATIENT
  Age: 46 Year
  Sex: Female
  Weight: 122.7 kg

DRUGS (12)
  1. AVANDIA [Suspect]
     Route: 048
  2. WELLBUTRIN [Suspect]
     Indication: DEPRESSION
     Dosage: 150MG TWICE PER DAY
     Route: 048
  3. PROVIGIL [Suspect]
     Route: 048
     Dates: start: 20030401
  4. CELEXA [Suspect]
     Indication: DEPRESSION
     Dosage: 40MG PER DAY
     Route: 048
  5. GLUCOPHAGE [Suspect]
     Dosage: 850MG THREE TIMES PER DAY
     Route: 048
  6. HUMALOG [Suspect]
     Route: 058
  7. REGULAR INSULIN [Suspect]
     Route: 058
  8. NEURONTIN [Concomitant]
  9. VIOXX [Concomitant]
  10. PRILOSEC [Concomitant]
  11. ALLEGRA [Concomitant]
  12. LISINOPRIL [Concomitant]

REACTIONS (2)
  - DRUG INTERACTION [None]
  - HYPOGLYCAEMIA [None]
